FAERS Safety Report 21130835 (Version 2)
Quarter: 2024Q2

REPORT INFORMATION
  Report Type: Spontaneous
  Country: GB (occurrence: GB)
  Receive Date: 20220726
  Receipt Date: 20240523
  Transmission Date: 20240716
  Serious: Yes (Life-Threatening, Hospitalization)
  Sender: FDA-Public Use
  Company Number: GB-TEVA-2022-GB-2058264

PATIENT
  Age: 47 Year
  Sex: Female

DRUGS (8)
  1. AMLODIPINE [Suspect]
     Active Substance: AMLODIPINE BESYLATE
     Indication: Product used for unknown indication
     Route: 065
  2. AMITRIPTYLINE [Suspect]
     Active Substance: AMITRIPTYLINE
     Indication: Product used for unknown indication
     Route: 065
  3. NOREPINEPHRINE [Suspect]
     Active Substance: NOREPINEPHRINE\NOREPINEPHRINE BITARTRATE
     Indication: Atrioventricular block complete
     Route: 065
  4. NOREPINEPHRINE [Suspect]
     Active Substance: NOREPINEPHRINE\NOREPINEPHRINE BITARTRATE
     Indication: Atrioventricular block complete
     Dosage: DOSAGE TEXT: ADMINISTERED LOW DOSES.
     Route: 065
  5. EPINEPHRINE [Suspect]
     Active Substance: EPINEPHRINE
     Indication: Atrioventricular block complete
     Route: 065
  6. SODIUM BICARBONATE [Suspect]
     Active Substance: SODIUM BICARBONATE
     Indication: Metabolic acidosis
     Route: 050
  7. INSULIN NOS [Concomitant]
     Active Substance: INSULIN NOS
     Indication: Toxicity to various agents
     Dosage: DOSAGE TEXT: ADMINISTERED 1 UNIT/KG, WHICH LATER TITRATED UP.
     Route: 065
  8. VASOPRESSIN [Concomitant]
     Active Substance: VASOPRESSIN
     Indication: Toxicity to various agents
     Dosage: DOSAGE TEXT: ADMINISTERED LOW DOSES.
     Route: 065

REACTIONS (8)
  - Cardiac arrest [Unknown]
  - Hypothermia [Unknown]
  - Pupil fixed [Unknown]
  - Atrioventricular block complete [Unknown]
  - Conduction disorder [Unknown]
  - Metabolic acidosis [Recovered/Resolved]
  - Drug ineffective [Unknown]
  - Overdose [Unknown]
